FAERS Safety Report 9867866 (Version 3)
Quarter: 2016Q1

REPORT INFORMATION
  Report Type: Report from Study
  Country: GB (occurrence: GB)
  Receive Date: 20140204
  Receipt Date: 20160225
  Transmission Date: 20160526
  Serious: Yes (Life-Threatening, Hospitalization, Disabling, Other)
  Sender: FDA-Public Use
  Company Number: GB-SANOFI-AVENTIS-2012SA007857

PATIENT
  Age: 37 Year
  Sex: Female
  Weight: 61.3 kg

DRUGS (5)
  1. GABAPENTIN. [Concomitant]
     Active Substance: GABAPENTIN
     Indication: PAIN
     Route: 048
  2. NIFEDIPINE. [Concomitant]
     Active Substance: NIFEDIPINE
     Indication: RAYNAUD^S PHENOMENON
     Route: 048
  3. TERIFLUNOMIDE [Suspect]
     Active Substance: TERIFLUNOMIDE
     Indication: MULTIPLE SCLEROSIS RELAPSE
     Route: 048
     Dates: start: 20080704, end: 201201
  4. SENOKOT-S [Concomitant]
     Active Substance: DOCUSATE SODIUM\SENNOSIDES
     Indication: CONSTIPATION
     Dosage: DOSE:5 UNIT(S)
     Route: 048
  5. AMITRIPTILINE [Concomitant]
     Indication: PAIN
     Route: 048

REACTIONS (2)
  - Sepsis [Recovered/Resolved with Sequelae]
  - Arthropathy [Recovered/Resolved with Sequelae]

NARRATIVE: CASE EVENT DATE: 201112
